FAERS Safety Report 5598600-9 (Version None)
Quarter: 2008Q1

REPORT INFORMATION
  Report Type: 
  Country: None (occurrence: None)
  Receive Date: 20080122
  Receipt Date: 20070123
  Transmission Date: 20080703
  Serious: No
  Sender: FDA-Public Use
  Company Number: US-BAUSCH-2006BL006709

PATIENT
  Age: 7 Year
  Sex: Female

DRUGS (2)
  1. DESMOPRESSIN ACETATE [Suspect]
     Indication: ENURESIS
     Route: 045
     Dates: start: 20061201, end: 20061207
  2. GUMMIVITES [Concomitant]

REACTIONS (1)
  - DRUG INEFFECTIVE [None]
